FAERS Safety Report 6234770-7 (Version None)
Quarter: 2009Q2

REPORT INFORMATION
  Report Type: 
  Country: None (occurrence: None)
  Receive Date: 20090618
  Receipt Date: 20090609
  Transmission Date: 20091009
  Serious: Yes (Hospitalization)
  Sender: FDA-Public Use
  Company Number: PHHY2009FR23572

PATIENT
  Sex: Male
  Weight: 70 kg

DRUGS (6)
  1. EXJADE [Suspect]
     Indication: SERUM FERRITIN INCREASED
     Dosage: UNK
     Dates: end: 20090430
  2. CITALOPRAM HYDROCHLORIDE [Suspect]
     Indication: CLAUSTROPHOBIA
     Dosage: 20 MG/DAY
     Dates: end: 20090501
  3. ALDALIX [Suspect]
     Dosage: 50/20 MG DAILY
     Dates: end: 20090430
  4. CORDARONE [Concomitant]
     Dosage: 200 MG/DAY
     Dates: end: 20090501
  5. PREVISCAN [Concomitant]
  6. AVLOCARDYL [Concomitant]

REACTIONS (7)
  - ASTHENIA [None]
  - JAUNDICE [None]
  - LIVER DISORDER [None]
  - ORTHOSTATIC HYPOTENSION [None]
  - RENAL DISORDER [None]
  - RENAL FAILURE [None]
  - TRANSAMINASES INCREASED [None]
